FAERS Safety Report 13034337 (Version 1)
Quarter: 2016Q4

REPORT INFORMATION
  Report Type: Report from Study
  Country: CA (occurrence: CA)
  Receive Date: 20161216
  Receipt Date: 20161216
  Transmission Date: 20170207
  Serious: Yes (Hospitalization)
  Sender: FDA-Public Use
  Company Number: CA-JNJFOC-20161209462

PATIENT
  Age: 24 Year
  Sex: Male

DRUGS (1)
  1. REMICADE [Suspect]
     Active Substance: INFLIXIMAB
     Indication: CROHN^S DISEASE
     Route: 042
     Dates: start: 20160204

REACTIONS (3)
  - Abscess [Unknown]
  - Intestinal obstruction [Recovering/Resolving]
  - Scar [Unknown]

NARRATIVE: CASE EVENT DATE: 2016
